FAERS Safety Report 21312088 (Version 1)
Quarter: 2022Q3

REPORT INFORMATION
  Report Type: Spontaneous
  Country: US (occurrence: None)
  Receive Date: 20220909
  Receipt Date: 20220909
  Transmission Date: 20221026
  Serious: No
  Sender: FDA-Public Use
  Company Number: US-ARIS GLOBAL-202204-0630

PATIENT
  Sex: Female
  Weight: 66.738 kg

DRUGS (10)
  1. OXERVATE [Suspect]
     Active Substance: CENEGERMIN-BKBJ
     Indication: Neurotrophic keratopathy
     Route: 047
     Dates: start: 20220401, end: 20220527
  2. MOXIFLOXACIN [Concomitant]
     Active Substance: MOXIFLOXACIN
  3. TRIAMCINOLONE ACETONIDE [Concomitant]
     Active Substance: TRIAMCINOLONE ACETONIDE
  4. IBUPROFEN [Concomitant]
     Active Substance: IBUPROFEN
  5. NAPROXEN SODIUM [Concomitant]
     Active Substance: NAPROXEN SODIUM
  6. XIIDRA [Concomitant]
     Active Substance: LIFITEGRAST
  7. CYCLOBENZAPRINE HYDROCHLORIDE [Concomitant]
     Active Substance: CYCLOBENZAPRINE HYDROCHLORIDE
  8. PROGESTERONE [Concomitant]
     Active Substance: PROGESTERONE
  9. RETAINE MGD [Concomitant]
     Active Substance: LIGHT MINERAL OIL\MINERAL OIL
     Dosage: 0.5 %-0.5%
  10. ESTRADIOL-NORETHINDRONE ACETAT [Concomitant]

REACTIONS (5)
  - Eye pain [Unknown]
  - Lacrimation increased [Unknown]
  - Eye irritation [Unknown]
  - Vision blurred [Unknown]
  - Dry eye [Unknown]
